FAERS Safety Report 24620764 (Version 1)
Quarter: 2024Q4

REPORT INFORMATION
  Report Type: Report from Study
  Country: RU (occurrence: RU)
  Receive Date: 20241114
  Receipt Date: 20241114
  Transmission Date: 20250115
  Serious: Yes (Hospitalization, Other)
  Sender: ALEXION PHARMACEUTICALS
  Company Number: RU-AstraZeneca-CH-00742173A

PATIENT
  Age: 11 Year

DRUGS (5)
  1. SELUMETINIB [Suspect]
     Active Substance: SELUMETINIB
     Indication: Neurofibromatosis
     Dosage: 90 MILLIGRAM
  2. SELUMETINIB [Suspect]
     Active Substance: SELUMETINIB
     Dosage: 90 MILLIGRAM
  3. SELUMETINIB [Suspect]
     Active Substance: SELUMETINIB
     Dosage: 90 MILLIGRAM
  4. SELUMETINIB [Suspect]
     Active Substance: SELUMETINIB
     Dosage: 90 MILLIGRAM
  5. PERINDOPRIL [Concomitant]
     Active Substance: PERINDOPRIL
     Dosage: 2.5 MILLIGRAM, QD

REACTIONS (3)
  - Hypertension [Not Recovered/Not Resolved]
  - Sinus tachycardia [Not Recovered/Not Resolved]
  - Developmental glaucoma [Recovered/Resolved with Sequelae]
